FAERS Safety Report 14898916 (Version 5)
Quarter: 2018Q4

REPORT INFORMATION
  Report Type: Report from Study
  Country: None (occurrence: TR)
  Receive Date: 20180515
  Receipt Date: 20181120
  Transmission Date: 20190204
  Serious: Yes (Hospitalization)
  Sender: FDA-Public Use
  Company Number: TR-ABBVIE-18K-161-2353792-00

PATIENT
  Sex: Female

DRUGS (14)
  1. DUODOPA [Suspect]
     Active Substance: CARBIDOPA\LEVODOPA
     Dosage: MORNING DOSE??(ML): 3,00??CONTINUOUS DOSE??(ML): 2,50??EXTRA DOSE??(ML): 2,00
     Route: 050
  2. LIORESAL [Concomitant]
     Active Substance: BACLOFEN
     Indication: PARKINSON^S DISEASE
     Route: 050
  3. MOTILIUM [Concomitant]
     Active Substance: DOMPERIDONE
     Indication: DIABETES MELLITUS
     Route: 050
  4. DIAMICRON [Concomitant]
     Active Substance: GLICLAZIDE
     Indication: DIABETES MELLITUS
     Route: 050
  5. GYREX [Concomitant]
     Indication: PARKINSON^S DISEASE
     Route: 050
  6. GLUCERNA [Concomitant]
     Active Substance: AMINO ACIDS\DEXTROSE\ELECTROLYTES NOS\SOYBEAN OIL\VITAMINS
     Indication: MALNUTRITION
     Dosage: 3X2
     Route: 050
  7. DUODOPA [Suspect]
     Active Substance: CARBIDOPA\LEVODOPA
     Indication: PARKINSON^S DISEASE
     Dosage: MORNING DOSE?(ML): 3,00?CONTINUOUS DOSE?(ML): 3,50?EXTRA DOSE?(ML): 2,00
     Route: 050
     Dates: start: 20170807
  8. GLUCOPHAGE [Concomitant]
     Active Substance: METFORMIN HYDROCHLORIDE
     Indication: PRODUCT USED FOR UNKNOWN INDICATION
  9. MOTILIUM [Concomitant]
     Active Substance: DOMPERIDONE
     Indication: PARKINSON^S DISEASE
     Route: 050
  10. DUODOPA [Suspect]
     Active Substance: CARBIDOPA\LEVODOPA
     Route: 050
  11. SERALIN [Concomitant]
     Active Substance: SERTRALINE HYDROCHLORIDE
     Indication: PARKINSON^S DISEASE
     Route: 050
  12. VASOCARD [Concomitant]
     Active Substance: AMLODIPINE BESYLATE
     Indication: HYPERTENSION
     Route: 050
  13. NEXIUM [Concomitant]
     Active Substance: ESOMEPRAZOLE MAGNESIUM
     Indication: PROPHYLAXIS
     Route: 050
  14. VELORIN [Concomitant]
     Indication: PARKINSON^S DISEASE
     Route: 050

REACTIONS (1)
  - Decubitus ulcer [Recovering/Resolving]
